FAERS Safety Report 15900684 (Version 15)
Quarter: 2019Q3

REPORT INFORMATION
  Report Type: Report from Study
  Country: CO (occurrence: CO)
  Receive Date: 20190201
  Receipt Date: 20190827
  Transmission Date: 20191004
  Serious: Yes (Other)
  Sender: FDA-Public Use
  Company Number: CO-JNJFOC-20190136098

PATIENT
  Age: 51 Year
  Sex: Female
  Weight: 64 kg

DRUGS (6)
  1. SIMPONI [Suspect]
     Active Substance: GOLIMUMAB
     Indication: ANKYLOSING SPONDYLITIS
     Route: 058
     Dates: start: 20170808, end: 20181013
  2. NEUREXAN [Suspect]
     Active Substance: HOMEOPATHICS
     Indication: PRODUCT USED FOR UNKNOWN INDICATION
     Route: 065
  3. SIMPONI [Suspect]
     Active Substance: GOLIMUMAB
     Dosage: IV
     Route: 042
     Dates: start: 20190329, end: 20190329
  4. SIMPONI [Suspect]
     Active Substance: GOLIMUMAB
     Route: 042
     Dates: start: 20190222, end: 20190222
  5. SIMPONI [Suspect]
     Active Substance: GOLIMUMAB
     Dosage: IV, 128 MG WEEK 0 AND 128 MG ONCE EVERY 4 WEEKS AND 128 MG ONCE EVERY 8 WEEKS ON 22/FEB/2019 - 22/FE
     Route: 042
     Dates: start: 20190506
  6. PREGABALIN. [Suspect]
     Active Substance: PREGABALIN
     Indication: PRODUCT USED FOR UNKNOWN INDICATION
     Route: 065

REACTIONS (45)
  - Dental caries [Recovering/Resolving]
  - Gastritis [Not Recovered/Not Resolved]
  - Obesity [Recovering/Resolving]
  - Osteoarthritis [Recovering/Resolving]
  - Tooth erosion [Recovering/Resolving]
  - Hypothyroidism [Recovering/Resolving]
  - Fibromyalgia [Recovering/Resolving]
  - Hyperlipidaemia [Recovering/Resolving]
  - Depression [Recovering/Resolving]
  - Menopausal symptoms [Recovering/Resolving]
  - Irritable bowel syndrome [Recovering/Resolving]
  - Post procedural haemorrhage [Not Recovered/Not Resolved]
  - Gingivitis [Recovering/Resolving]
  - Adjustment disorder [Recovering/Resolving]
  - Hypertension [Recovering/Resolving]
  - Pelvic pain [Unknown]
  - Incorrect dose administered [Unknown]
  - Haemorrhoids [Recovering/Resolving]
  - Cellulitis [Not Recovered/Not Resolved]
  - Arrhythmia [Not Recovered/Not Resolved]
  - Syncope [Recovering/Resolving]
  - Limb injury [Recovering/Resolving]
  - Off label use [Unknown]
  - Pain [Recovering/Resolving]
  - Intervertebral disc disorder [Recovering/Resolving]
  - Tooth loss [Recovering/Resolving]
  - Endometrial hyperplasia [Not Recovered/Not Resolved]
  - Nasal congestion [Not Recovered/Not Resolved]
  - Ear infection [Not Recovered/Not Resolved]
  - Influenza [Recovering/Resolving]
  - Feeling hot [Not Recovered/Not Resolved]
  - Diarrhoea [Not Recovered/Not Resolved]
  - Dysphonia [Not Recovered/Not Resolved]
  - Product dose omission [Unknown]
  - Mental disorder [Recovering/Resolving]
  - Tenosynovitis [Recovering/Resolving]
  - Vertigo CNS origin [Recovering/Resolving]
  - Pharyngotonsillitis [Recovering/Resolving]
  - Oropharyngeal pain [Not Recovered/Not Resolved]
  - Vaginal infection [Not Recovered/Not Resolved]
  - Uterine polyp [Not Recovered/Not Resolved]
  - Thermal burn [Not Recovered/Not Resolved]
  - Arthritis [Not Recovered/Not Resolved]
  - Metabolic disorder [Recovering/Resolving]
  - Chest pain [Recovering/Resolving]

NARRATIVE: CASE EVENT DATE: 20170925
